FAERS Safety Report 4542960-4 (Version None)
Quarter: 2004Q4

REPORT INFORMATION
  Report Type: 
  Country: None (occurrence: None)
  Receive Date: 20041229
  Receipt Date: 20041220
  Transmission Date: 20050328
  Serious: Yes (Hospitalization)
  Sender: FDA-Public Use
  Company Number: 2004-BP-14126BP(0)

PATIENT
  Age: 19 Month
  Sex: Male

DRUGS (1)
  1. CLONIDINE [Suspect]
     Dosage: PO
     Route: 048

REACTIONS (2)
  - ACCIDENTAL EXPOSURE [None]
  - LOSS OF CONSCIOUSNESS [None]
